FAERS Safety Report 7351046-5 (Version None)
Quarter: 2011Q1

REPORT INFORMATION
  Report Type: 
  Country: None (occurrence: None)
  Receive Date: 20110314
  Receipt Date: 20110302
  Transmission Date: 20110831
  Serious: Yes (Death, Hospitalization)
  Sender: FDA-Public Use
  Company Number: DE-GENENTECH-292615

PATIENT
  Age: 71 Year
  Sex: Female
  Weight: 76 kg

DRUGS (2)
  1. BENDAMUSTINE [Suspect]
     Indication: CHRONIC LYMPHOCYTIC LEUKAEMIA
     Dosage: 165.6 MG, UNK
     Route: 042
     Dates: start: 20090217, end: 20090714
  2. RITUXIMAB [Suspect]
     Indication: CHRONIC LYMPHOCYTIC LEUKAEMIA
     Dosage: 920 MG, UNK
     Route: 042
     Dates: start: 20090216, end: 20090713

REACTIONS (2)
  - PNEUMONIA [None]
  - IMMUNOGLOBULINS DECREASED [None]
